FAERS Safety Report 9002325 (Version 2)
Quarter: 2013Q1

REPORT INFORMATION
  Report Type: Spontaneous
  Country: US (occurrence: US)
  Receive Date: 20130107
  Receipt Date: 20130130
  Transmission Date: 20140127
  Serious: No
  Sender: FDA-Public Use
  Company Number: US-ROXANE LABORATORIES, INC.-2012-RO-02602RO

PATIENT
  Sex: Female

DRUGS (1)
  1. BALSALAZIDE [Suspect]
     Indication: COLITIS
     Dosage: 6750 MG
     Route: 048
     Dates: start: 2009

REACTIONS (3)
  - Product taste abnormal [Not Recovered/Not Resolved]
  - Nausea [Not Recovered/Not Resolved]
  - Product quality issue [Not Recovered/Not Resolved]
